FAERS Safety Report 20638196 (Version 1)
Quarter: 2022Q1

REPORT INFORMATION
  Report Type: Spontaneous
  Country: US (occurrence: None)
  Receive Date: 20220325
  Receipt Date: 20220325
  Transmission Date: 20220424
  Serious: Yes (unspecified)
  Sender: FDA-Public Use
  Company Number: None

PATIENT
  Age: 41 Year
  Sex: Female
  Weight: 135.2 kg

DRUGS (2)
  1. BAMLANIVIMAB [Suspect]
     Active Substance: BAMLANIVIMAB
     Indication: COVID-19
     Dosage: OTHER FREQUENCY : ONCE;?
     Route: 042
     Dates: start: 20220108, end: 20220108
  2. ETESEVIMAB [Suspect]
     Active Substance: ETESEVIMAB
     Indication: COVID-19
     Dosage: OTHER FREQUENCY : ONCE;?
     Route: 042
     Dates: start: 20220108, end: 20220108

REACTIONS (8)
  - Infusion related reaction [None]
  - Feeling abnormal [None]
  - Flushing [None]
  - Hyperhidrosis [None]
  - Hypertension [None]
  - Heart rate increased [None]
  - Respiratory rate increased [None]
  - Back pain [None]

NARRATIVE: CASE EVENT DATE: 20220108
